FAERS Safety Report 7047928-4 (Version None)
Quarter: 2010Q4

REPORT INFORMATION
  Report Type: 
  Country: None (occurrence: None)
  Receive Date: 20101015
  Receipt Date: 20101013
  Transmission Date: 20110411
  Serious: Yes (Death)
  Sender: FDA-Public Use
  Company Number: GB-JNJFOC-20050101858

PATIENT
  Age: 92 Year
  Sex: Female
  Weight: 40 kg

DRUGS (4)
  1. IBUPROFEN [Suspect]
     Indication: CHEST PAIN
     Route: 048
  2. PARACETAMOL [Concomitant]
     Indication: CHEST PAIN
     Route: 048
  3. LACTULOSE [Concomitant]
     Indication: CONSTIPATION
     Route: 048
  4. SENNA [Concomitant]
     Dosage: 2 TABLETS, ORAL
     Route: 048

REACTIONS (7)
  - ABDOMINAL PAIN [None]
  - ABDOMINAL TENDERNESS [None]
  - BLOOD AMYLASE INCREASED [None]
  - BLOOD CREATININE INCREASED [None]
  - CONSTIPATION [None]
  - DEHYDRATION [None]
  - PANCREATITIS [None]
